FAERS Safety Report 16018757 (Version 1)
Quarter: 2019Q1

REPORT INFORMATION
  Report Type: Report from Study
  Country: FR (occurrence: FR)
  Receive Date: 20190228
  Receipt Date: 20190228
  Transmission Date: 20190418
  Serious: Yes (Other)
  Sender: FDA-Public Use
  Company Number: FR-MYLANLABS-2019M1018338

PATIENT
  Age: 60 Year
  Sex: Female

DRUGS (4)
  1. GILENYA [Suspect]
     Active Substance: FINGOLIMOD HYDROCHLORIDE
     Indication: MULTIPLE SCLEROSIS
     Dosage: 0.5 MG, QD
     Route: 048
     Dates: start: 20150519, end: 20150708
  2. ELSEP 2 MG/ML, SOLUTION ? DILUER POUR PERFUSION [Suspect]
     Active Substance: MITOXANTRONE HYDROCHLORIDE
     Indication: PRODUCT USED FOR UNKNOWN INDICATION
     Dosage: 20 MG, 1/MONTH
     Route: 065
     Dates: start: 20151127, end: 20170118
  3. BACLOFEN. [Concomitant]
     Active Substance: BACLOFEN
     Indication: MULTIPLE SCLEROSIS
     Dosage: 2 DF, QD
     Route: 048
  4. MITOXANTRONE [Concomitant]
     Active Substance: MITOXANTRONE HYDROCHLORIDE
     Indication: MULTIPLE SCLEROSIS
     Dosage: UNK
     Route: 042
     Dates: start: 201511, end: 20170118

REACTIONS (9)
  - Blood alkaline phosphatase increased [Unknown]
  - Lymphopenia [Recovered/Resolved]
  - Facial neuralgia [Recovered/Resolved]
  - Asthenia [Recovered/Resolved]
  - Sinus bradycardia [Recovered/Resolved]
  - Gamma-glutamyltransferase decreased [Unknown]
  - Urinary tract infection [Recovered/Resolved]
  - Neutropenia [Recovered/Resolved]
  - Leukopenia [Recovered/Resolved]

NARRATIVE: CASE EVENT DATE: 20150206
